FAERS Safety Report 4807562-0 (Version None)
Quarter: 2005Q4

REPORT INFORMATION
  Report Type: 
  Country: None (occurrence: None)
  Receive Date: 20051020
  Receipt Date: 20050924
  Transmission Date: 20060501
  Serious: Yes (Hospitalization)
  Sender: FDA-Public Use
  Company Number: 1794

PATIENT
  Age: 44 Year
  Sex: Female

DRUGS (2)
  1. AMNESTEEM [Suspect]
     Dosage: PO
     Route: 048
     Dates: start: 20050417, end: 20050515
  2. ACCUTANE [Suspect]
     Dosage: PO
     Route: 048
     Dates: start: 20050516, end: 20050515

REACTIONS (1)
  - MYOCARDIAL INFARCTION [None]
